FAERS Safety Report 21880990 (Version 1)
Quarter: 2023Q1

REPORT INFORMATION
  Report Type: Report from Study
  Country: IR (occurrence: IR)
  Receive Date: 20230118
  Receipt Date: 20230118
  Transmission Date: 20230418
  Serious: Yes (Other)
  Sender: FDA-Public Use
  Company Number: IR-GILEAD-2023-0613192

PATIENT
  Age: 32 Year
  Sex: Female
  Weight: 80 kg

DRUGS (7)
  1. REMDESIVIR [Suspect]
     Active Substance: REMDESIVIR
     Indication: COVID-19
     Route: 065
  2. METHYLPREDNISOLONE [Concomitant]
     Active Substance: METHYLPREDNISOLONE
  3. ENOXAPARIN SODIUM [Concomitant]
     Active Substance: ENOXAPARIN SODIUM
  4. CEFTRIAXONE [Concomitant]
     Active Substance: CEFTRIAXONE
  5. METRONIDAZOLE [Concomitant]
     Active Substance: METRONIDAZOLE
  6. VANCOMYCIN [Concomitant]
     Active Substance: VANCOMYCIN
  7. PIPERACILLIN SODIUM\TAZOBACTAM SODIUM [Concomitant]
     Active Substance: PIPERACILLIN SODIUM\TAZOBACTAM SODIUM

REACTIONS (1)
  - Premature delivery [Recovered/Resolved]
